FAERS Safety Report 9184553 (Version 1)
Quarter: 2013Q1

REPORT INFORMATION
  Report Type: Spontaneous
  Country: ES (occurrence: ES)
  Receive Date: 20130322
  Receipt Date: 20130322
  Transmission Date: 20140127
  Serious: Yes (Hospitalization)
  Sender: FDA-Public Use
  Company Number: ES-MYLANLABS-2013S1005594

PATIENT
  Age: 66 Year
  Sex: Male

DRUGS (3)
  1. OXALIPLATIN [Suspect]
     Indication: RECTOSIGMOID CANCER METASTATIC
     Dosage: 85MG/M2, 14-DAY TREATMENT CYCLE
     Route: 065
  2. FLUOROURACIL [Suspect]
     Indication: RECTOSIGMOID CANCER METASTATIC
     Dosage: 600MG/M2 2-H INFUSION, 14-DAY CYCLE
     Route: 050
  3. FOLINIC ACID [Concomitant]
     Indication: RECTOSIGMOID CANCER METASTATIC
     Dosage: 200MG/M2, 14-DAY CYCLE
     Route: 065

REACTIONS (1)
  - Renal failure acute [Recovered/Resolved]
